FAERS Safety Report 8427060-5 (Version None)
Quarter: 2012Q2

REPORT INFORMATION
  Report Type: 
  Country: None (occurrence: None)
  Receive Date: 20120611
  Receipt Date: 20120604
  Transmission Date: 20120825
  Serious: Yes (Hospitalization)
  Sender: FDA-Public Use
  Company Number: DE-UCBSA-053420

PATIENT
  Sex: Female
  Weight: 63 kg

DRUGS (12)
  1. CIMZIA [Suspect]
     Indication: RHEUMATOID ARTHRITIS
     Dosage: NO OF DOSES RECEIVED 5
     Route: 058
     Dates: start: 20110919, end: 20111124
  2. NIFEDIPINE [Concomitant]
     Indication: HYPERTENSION
     Dates: start: 20080101
  3. OMEPRAZOLE [Concomitant]
     Indication: PROPHYLAXIS AGAINST GASTROINTESTINAL ULCER
     Dates: start: 20081201
  4. ALLOPURINOL [Concomitant]
     Indication: HYPERURICAEMIA
     Dates: start: 20061001
  5. BUPRENORPHINE [Concomitant]
     Indication: INTERVERTEBRAL DISC DEGENERATION
     Dosage: 5?G/H
     Dates: start: 20110801
  6. PREDNISONE TAB [Concomitant]
     Dates: start: 20111101
  7. D3 VICOTRAT [Concomitant]
     Indication: VITAMIN D DEFICIENCY
     Dates: start: 20110401
  8. METOPROLOL SUCCINATE [Concomitant]
     Indication: HYPERTENSION
     Dates: start: 20110801
  9. PREDNISONE TAB [Concomitant]
     Dates: start: 20111108
  10. IRBESARTAN [Concomitant]
     Indication: HYPERTENSION
     Dates: start: 20110801
  11. PREDNISONE TAB [Concomitant]
     Indication: RHEUMATOID ARTHRITIS
     Dates: start: 20110701, end: 20111107
  12. TRAMADOL HCL [Concomitant]
     Indication: INTERVERTEBRAL DISC DEGENERATION
     Dates: start: 20080801

REACTIONS (1)
  - GALLBLADDER EMPYEMA [None]
